FAERS Safety Report 4706066-3 (Version None)
Quarter: 2005Q2

REPORT INFORMATION
  Report Type: 
  Country: None (occurrence: None)
  Receive Date: 20050629
  Receipt Date: 20050622
  Transmission Date: 20051028
  Serious: Yes (Other)
  Sender: FDA-Public Use
  Company Number: 2005091829

PATIENT
  Age: 70 Year
  Sex: Female
  Weight: 77.1115 kg

DRUGS (7)
  1. CELEBREX [Suspect]
     Indication: OSTEOARTHRITIS
  2. SYNTROID (LEVOTHYROXINE SODIUM) [Concomitant]
  3. MODURETIC 5-50 [Concomitant]
  4. MICRO-K (POTASSIUM CHLORIDE) [Concomitant]
  5. TAMOXIFEN CITRATE [Concomitant]
  6. CENTRUM SILVER (ASCORBIC ACID, CALCIUM, MINERAL NOS, RETINOL, TOCPHERY [Concomitant]
  7. CALCIUM (CALCIUM) [Concomitant]

REACTIONS (6)
  - ARTHRALGIA [None]
  - BODY HEIGHT DECREASED [None]
  - DRUG INEFFECTIVE [None]
  - KNEE ARTHROPLASTY [None]
  - TENOSYNOVITIS [None]
  - TREATMENT NONCOMPLIANCE [None]
